FAERS Safety Report 21661104 (Version 1)
Quarter: 2022Q4

REPORT INFORMATION
  Report Type: Spontaneous
  Country: CN (occurrence: CN)
  Receive Date: 20221130
  Receipt Date: 20221130
  Transmission Date: 20230112
  Serious: Yes (Other)
  Sender: FDA-Public Use
  Company Number: None

PATIENT
  Age: 67 Year
  Sex: Female
  Weight: 60.5 kg

DRUGS (4)
  1. CYCLOPHOSPHAMIDE [Suspect]
     Active Substance: CYCLOPHOSPHAMIDE
     Indication: Breast cancer female
     Dosage: 1 G, QD, (DIUTED WITH 0.9% SODIUM CHLORIDE 100ML)
     Route: 041
     Dates: start: 20221027, end: 20221027
  2. SODIUM CHLORIDE [Suspect]
     Active Substance: SODIUM CHLORIDE
     Indication: Medication dilution
     Dosage: 100 ML, QD, (USED TO DILUTE CYCLOPHOSPHAMIDE 1 G)
     Route: 041
     Dates: start: 20221027, end: 20221027
  3. DEXTROSE MONOHYDRATE [Suspect]
     Active Substance: DEXTROSE MONOHYDRATE
     Indication: Medication dilution
     Dosage: 100 ML, QD, (USED TO DILUTE PIRARUBICIN HYDROCHLORIDE 80 MG)
     Route: 041
     Dates: start: 20221027, end: 20221027
  4. PIRARUBICIN HYDROCHLORIDE [Suspect]
     Active Substance: PIRARUBICIN HYDROCHLORIDE
     Indication: Breast cancer female
     Dosage: 80 MG, QD, (DILUTED WITH 5% GLUCOSE 100ML), DOSAGE FORM- LYOPHILIZED POWDER
     Route: 041
     Dates: start: 20221027, end: 20221027

REACTIONS (7)
  - Dysphagia [Recovered/Resolved]
  - Myelosuppression [Recovered/Resolved]
  - Nausea [Recovered/Resolved]
  - Vomiting [Recovered/Resolved]
  - Diarrhoea [Recovered/Resolved]
  - Neutrophil count decreased [Recovered/Resolved]
  - Platelet count decreased [Recovered/Resolved]

NARRATIVE: CASE EVENT DATE: 20221103
